FAERS Safety Report 15270815 (Version 3)
Quarter: 2020Q1

REPORT INFORMATION
  Report Type: Spontaneous
  Country: US (occurrence: US)
  Receive Date: 20180813
  Receipt Date: 20200219
  Transmission Date: 20200409
  Serious: No
  Sender: FDA-Public Use
  Company Number: US-SA-2018SA218855

PATIENT
  Age: 59 Year
  Sex: Female

DRUGS (9)
  1. TRICORT [Concomitant]
     Active Substance: TRIAMCINOLONE ACETONIDE
  2. VENTOLIN [Concomitant]
     Active Substance: ALBUTEROL SULFATE
  3. VITAMIN B12 [Concomitant]
     Active Substance: CYANOCOBALAMIN
  4. MACROBID [CLARITHROMYCIN] [Concomitant]
     Active Substance: CLARITHROMYCIN
  5. METOPROLOL. [Concomitant]
     Active Substance: METOPROLOL
  6. AUBAGIO [Suspect]
     Active Substance: TERIFLUNOMIDE
     Indication: MULTIPLE SCLEROSIS
     Dosage: 7 MG, QD
     Route: 048
     Dates: start: 20180701, end: 20181116
  7. TYLENOL [Concomitant]
     Active Substance: ACETAMINOPHEN
  8. VITAMIN D3 [Concomitant]
     Active Substance: CHOLECALCIFEROL
  9. BIOTIN [Concomitant]
     Active Substance: BIOTIN

REACTIONS (5)
  - Pain in extremity [Unknown]
  - Muscular weakness [Unknown]
  - Headache [Unknown]
  - Fall [Unknown]
  - Therapeutic response unexpected [Unknown]

NARRATIVE: CASE EVENT DATE: 201807
